FAERS Safety Report 8951441 (Version 4)
Quarter: 2013Q1

REPORT INFORMATION
  Report Type: Spontaneous
  Country: GB (occurrence: None)
  Receive Date: 20121129
  Receipt Date: 20130114
  Transmission Date: 20140127
  Serious: Yes (Other)
  Sender: FDA-Public Use
  Company Number: AUR-APL-2012-04993

PATIENT
  Age: 70 Year
  Sex: Female
  Weight: 72.2 kg

DRUGS (21)
  1. METFORMIN [Suspect]
     Dosage: 1000 MG (500 MG, 2 IN 1 D)
  2. IBUPROFEN (IBUPROFEN) [Suspect]
     Indication: RHEUMATOID ARTHRITIS
     Dosage: 1200 MG (400 MG, 3 IN 1 D)
  3. IBUPROFEN (IBUPROFEN) [Suspect]
     Indication: PYREXIA
     Dosage: 1200 MG (400 MG, 3 IN 1 D)
  4. IBUPROFEN (IBUPROFEN) [Suspect]
     Indication: PAIN
     Dosage: 1200 MG (400 MG, 3 IN 1 D)
  5. IBUPROFEN (IBUPROFEN) [Suspect]
     Indication: DYSMENORRHOEA
     Dosage: 1200 MG (400 MG, 3 IN 1 D)
  6. IBUPROFEN (IBUPROFEN) [Suspect]
     Indication: PERICARDITIS
     Dosage: 1200 MG (400 MG, 3 IN 1 D)
  7. IBUPROFEN (IBUPROFEN) [Suspect]
     Indication: PATENT DUCTUS ARTERIOSUS
     Dosage: 1200 MG (400 MG, 3 IN 1 D)
  8. ATORVASTATIN (ATORVASTATIN) [Suspect]
     Indication: DYSLIPIDAEMIA
  9. ATORVASTATIN (ATORVASTATIN) [Suspect]
     Indication: CARDIOVASCULAR EVENT PROPHYLAXIS
  10. ATORVASTATIN (ATORVASTATIN) [Suspect]
     Indication: DYSLIPIDAEMIA
  11. CARBAMAZEPINE (CARBAMAZEPINE) CHEWABLE TABLET [Suspect]
     Dosage: 100 MG 2 TABLETS UP TO 4 TIMES A DAY
  12. CARBAMAZEPINE (CARBAMAZEPINE) CHEWABLE TABLET [Suspect]
     Indication: CONVULSION
     Dosage: 100 MG 2 TABLETS UP TO 4 TIMES A DAY
  13. GLYCERYL TRINITRATE [Suspect]
     Indication: ISCHAEMIC HEART DISEASE PROPHYLAXIS
     Route: 060
  14. LANSOPRAZOLE (LANSOPRAZOLE) [Suspect]
     Indication: DUODENAL ULCER
  15. LANSOPRAZOLE (LANSOPRAZOLE) [Suspect]
     Indication: GASTRIC ULCER
  16. LANSOPRAZOLE (LANSOPRAZOLE) [Suspect]
     Indication: ULCER
  17. LANSOPRAZOLE (LANSOPRAZOLE) [Suspect]
     Indication: GASTROOESOPHAGEAL REFLUX DISEASE
  18. LANSOPRAZOLE (LANSOPRAZOLE) [Suspect]
     Indication: GASTRINOMA
  19. LANSOPRAZOLE (LANSOPRAZOLE) [Suspect]
     Indication: ULCER
  20. LOPERAMIDE [Suspect]
     Indication: FUNCTIONAL GASTROINTESTINAL DISORDER
  21. ISOSORBIDE MONONITRATE [Suspect]
     Indication: ISCHAEMIC HEART DISEASE PROPHYLAXIS

REACTIONS (2)
  - Colitis microscopic [None]
  - Blood pressure diastolic decreased [None]
